FAERS Safety Report 9400423 (Version 1)
Quarter: 2013Q3

REPORT INFORMATION
  Report Type: Spontaneous
  Country: JP (occurrence: None)
  Receive Date: 20130711
  Receipt Date: 20130711
  Transmission Date: 20140515
  Serious: Yes (Hospitalization)
  Sender: FDA-Public Use
  Company Number: ETOC20130001

PATIENT
  Age: 76 Year
  Sex: Female

DRUGS (1)
  1. ETODOLAC [Suspect]
     Indication: SPINAL OSTEOARTHRITIS

REACTIONS (2)
  - Sepsis [None]
  - Histiocytosis haematophagic [None]
